FAERS Safety Report 20894520 (Version 2)
Quarter: 2022Q2

REPORT INFORMATION
  Report Type: Spontaneous
  Country: US (occurrence: US)
  Receive Date: 20220531
  Receipt Date: 20220627
  Transmission Date: 20220720
  Serious: No
  Sender: FDA-Public Use
  Company Number: US-BRISTOL-MYERS SQUIBB COMPANY-2022-035970

PATIENT
  Age: 85 Year
  Sex: Female

DRUGS (1)
  1. REVLIMID [Suspect]
     Active Substance: LENALIDOMIDE
     Indication: Vitamin D deficiency
     Dosage: 1-14 OF A 21 DAY CYCLE
     Route: 048
     Dates: start: 20220505

REACTIONS (4)
  - Drug intolerance [Unknown]
  - Pain [Unknown]
  - Dry mouth [Unknown]
  - Intentional product use issue [Unknown]
